FAERS Safety Report 17519778 (Version 2)
Quarter: 2020Q1

REPORT INFORMATION
  Report Type: Spontaneous
  Country: US (occurrence: US)
  Receive Date: 20200310
  Receipt Date: 20200316
  Transmission Date: 20200409
  Serious: Yes (Hospitalization, Other)
  Sender: FDA-Public Use
  Company Number: US-NOVOPROD-715948

PATIENT
  Sex: Male

DRUGS (1)
  1. NOVOLOG [Suspect]
     Active Substance: INSULIN ASPART
     Indication: DIABETES MELLITUS
     Dosage: 10 UNITS WITH SLIDING SCALE
     Route: 058

REACTIONS (6)
  - Hospitalisation [Unknown]
  - Blood glucose decreased [Recovering/Resolving]
  - Product quality issue [Unknown]
  - Pulmonary haemorrhage [Unknown]
  - Vascular graft [Unknown]
  - Impaired healing [Unknown]

NARRATIVE: CASE EVENT DATE: 2019
